FAERS Safety Report 25003871 (Version 1)
Quarter: 2025Q1

REPORT INFORMATION
  Report Type: Spontaneous
  Country: US (occurrence: None)
  Receive Date: 20250221
  Receipt Date: 20250221
  Transmission Date: 20250409
  Serious: No
  Sender: FDA-CTU
  Company Number: None

PATIENT
  Age: 28 Year
  Sex: Female
  Weight: 122.7 kg

DRUGS (2)
  1. GAMMAGARD LIQUID [Suspect]
     Active Substance: HUMAN IMMUNOGLOBULIN G
     Indication: Immune thrombocytopenia
     Dosage: 55 G GRAMS DAILY INTRAVENOUS DRIP ?
     Route: 041
  2. GAMMAGARD LIQUID [Suspect]
     Active Substance: HUMAN IMMUNOGLOBULIN G
     Indication: Immune thrombocytopenia
     Dosage: 55 G GRAMS DAILY INTRAVENOUS DRIP
     Route: 041

REACTIONS (1)
  - Antibody test positive [None]

NARRATIVE: CASE EVENT DATE: 20250128
